FAERS Safety Report 20811770 (Version 1)
Quarter: 2022Q2

REPORT INFORMATION
  Report Type: Spontaneous
  Country: CA (occurrence: CA)
  Receive Date: 20220511
  Receipt Date: 20220511
  Transmission Date: 20220721
  Serious: Yes (Hospitalization, Other)
  Sender: FDA-Public Use
  Company Number: CA-AMGEN-CANSP2022077301

PATIENT
  Age: 51 Year
  Sex: Male

DRUGS (6)
  1. RITUXIMAB [Suspect]
     Active Substance: RITUXIMAB
     Indication: Cytopenia
     Dosage: 375 MILLIGRAM/M2, QWK (FOR 4 DOSES)
     Route: 065
  2. RITUXIMAB [Suspect]
     Active Substance: RITUXIMAB
     Indication: Blood immunoglobulin G increased
  3. RITUXIMAB [Suspect]
     Active Substance: RITUXIMAB
     Indication: Blood immunoglobulin M increased
  4. RITUXIMAB [Suspect]
     Active Substance: RITUXIMAB
     Indication: Lymphadenopathy
  5. RITUXIMAB [Suspect]
     Active Substance: RITUXIMAB
     Indication: Splenomegaly
  6. HUMAN IMMUNOGLOBULIN G [Concomitant]
     Active Substance: HUMAN IMMUNOGLOBULIN G

REACTIONS (10)
  - Blood immunoglobulin G increased [Unknown]
  - Lymphoid tissue hyperplasia [Unknown]
  - Blood immunoglobulin M increased [Unknown]
  - Lymphadenopathy [Unknown]
  - Cytopenia [Recovered/Resolved]
  - Dyspnoea [Unknown]
  - Hypoxia [Unknown]
  - Lung infiltration [Unknown]
  - Drug effective for unapproved indication [Unknown]
  - Off label use [Unknown]
